FAERS Safety Report 10137016 (Version 2)
Quarter: 2014Q3

REPORT INFORMATION
  Report Type: Report from Study
  Country: US (occurrence: None)
  Receive Date: 20140425
  Receipt Date: 20140729
  Transmission Date: 20150326
  Serious: Yes (Hospitalization)
  Sender: FDA-Public Use
  Company Number: 2014SGN00387

PATIENT
  Age: 28 Year
  Sex: Female

DRUGS (1)
  1. BRENTUXIMAB VEDOTIN [Suspect]
     Active Substance: BRENTUXIMAB VEDOTIN
     Indication: HODGKIN^S DISEASE
     Route: 042
     Dates: start: 20140306, end: 20140331

REACTIONS (9)
  - Lymphadenopathy [None]
  - Cellulitis [None]
  - Rash maculo-papular [None]
  - Diabetic ketoacidosis [None]
  - Hyperglycaemia [None]
  - Generalised oedema [None]
  - Pyrexia [None]
  - Pain of skin [None]
  - Blood lactic acid increased [None]

NARRATIVE: CASE EVENT DATE: 20140401
